FAERS Safety Report 5098980-7 (Version None)
Quarter: 2006Q3

REPORT INFORMATION
  Report Type: 
  Country: None (occurrence: None)
  Receive Date: 20060907
  Receipt Date: 20060905
  Transmission Date: 20061208
  Serious: Yes (Other)
  Sender: FDA-Public Use
  Company Number: US-BOEHRINGER INGELHEIM PHARMACEUTICALS, INC.-2006-BP-10274BP

PATIENT
  Age: 74 Year
  Sex: Male

DRUGS (1)
  1. FLOMAX [Suspect]
     Indication: BENIGN PROSTATIC HYPERPLASIA
     Route: 048
     Dates: start: 20060223

REACTIONS (3)
  - PROSTATE CANCER [None]
  - PROSTATIC SPECIFIC ANTIGEN DECREASED [None]
  - PROSTATIC SPECIFIC ANTIGEN INCREASED [None]
